FAERS Safety Report 25369400 (Version 1)
Quarter: 2025Q2

REPORT INFORMATION
  Report Type: Spontaneous
  Country: US (occurrence: US)
  Receive Date: 20250528
  Receipt Date: 20250528
  Transmission Date: 20250717
  Serious: Yes (Death, Hospitalization, Other)
  Sender: PURDUE
  Company Number: US-PURDUE PHARMA-USA-2025-0317722

PATIENT
  Age: 46 Year
  Sex: Male

DRUGS (2)
  1. HYDROMORPHONE HYDROCHLORIDE [Suspect]
     Active Substance: HYDROMORPHONE HYDROCHLORIDE
     Indication: Pain
     Route: 065
  2. LORAZEPAM [Suspect]
     Active Substance: LORAZEPAM
     Indication: Anxiety
     Route: 065

REACTIONS (8)
  - Hepatic failure [Fatal]
  - Hepatitis C [Unknown]
  - Liver injury [Unknown]
  - Abdominal distension [Unknown]
  - Abdominal pain [Unknown]
  - Drug dependence [Unknown]
  - Mental disorder [Unknown]
  - Drug diversion [Unknown]

NARRATIVE: CASE EVENT DATE: 20230901
